FAERS Safety Report 10081698 (Version 2)
Quarter: 2014Q2

REPORT INFORMATION
  Report Type: Spontaneous
  Country: US (occurrence: US)
  Receive Date: 20140416
  Receipt Date: 20140423
  Transmission Date: 20141212
  Serious: Yes (Hospitalization)
  Sender: FDA-Public Use
  Company Number: US-BAXTER-2014BAX018538

PATIENT
  Sex: Male

DRUGS (1)
  1. DIANEAL LOW CALCIUM [Suspect]
     Indication: RENAL FAILURE CHRONIC
     Route: 033
     Dates: start: 2009, end: 201402

REACTIONS (4)
  - Gastric infection [Recovering/Resolving]
  - Abdominal abscess [Recovering/Resolving]
  - Abdominal adhesions [Recovering/Resolving]
  - Infection [Recovering/Resolving]
